FAERS Safety Report 6917708-6 (Version None)
Quarter: 2010Q3

REPORT INFORMATION
  Report Type: 
  Country: None (occurrence: None)
  Receive Date: 20100810
  Receipt Date: 20100803
  Transmission Date: 20110219
  Serious: Yes (Other)
  Sender: FDA-Public Use
  Company Number: JP-ABBOTT-10P-087-0662016-00

PATIENT
  Age: 19 Year
  Sex: Female

DRUGS (10)
  1. SEVOFLURANE [Suspect]
     Indication: MAINTENANCE OF ANAESTHESIA
     Dosage: 0.5-1.5%
     Route: 065
  2. PROPOFOL MARUISHI [Suspect]
     Indication: INDUCTION OF ANAESTHESIA
     Dosage: 1%
  3. FENTANYL CITRATE [Suspect]
     Indication: INDUCTION AND MAINTENANCE OF ANAESTHESIA
  4. ATROPINE SULFATE [Suspect]
     Indication: PREMEDICATION
  5. DORMICUM [Suspect]
     Indication: PREMEDICATION
  6. NITROUS OXIDE [Suspect]
     Indication: MAINTENANCE OF ANAESTHESIA
     Dosage: 4 L PER MINUTE
  7. DROPERIDOL [Suspect]
     Indication: PRODUCT USED FOR UNKNOWN INDICATION
     Route: 042
  8. CARBOCISTEINE [Concomitant]
     Indication: PRIMARY CILIARY DYSKINESIA
     Route: 048
  9. VECURONIUM BROMIDE [Concomitant]
     Indication: PRODUCT USED FOR UNKNOWN INDICATION
  10. OXYGEN [Concomitant]
     Indication: MAINTENANCE OF ANAESTHESIA
     Dosage: 2 L PER MINUTE

REACTIONS (3)
  - HYPOXIA [None]
  - INCREASED BRONCHIAL SECRETION [None]
  - NAUSEA [None]
